FAERS Safety Report 7367979-X (Version None)
Quarter: 2011Q1

REPORT INFORMATION
  Report Type: 
  Country: None (occurrence: None)
  Receive Date: 20110322
  Receipt Date: 20110310
  Transmission Date: 20110831
  Serious: Yes (Other)
  Sender: FDA-Public Use
  Company Number: PHHY2011US20132

PATIENT
  Age: 33 Year
  Sex: Male

DRUGS (5)
  1. DIAZEPAM [Suspect]
     Dosage: UNK
  2. FLUOXETINE [Suspect]
     Indication: ADJUSTMENT DISORDER WITH DEPRESSED MOOD
  3. DIAZEPAM [Suspect]
     Dosage: UNK
  4. FLUOXETINE [Suspect]
  5. SERTRALINE HYDROCHLORIDE [Suspect]

REACTIONS (17)
  - SEROTONIN SYNDROME [None]
  - DISTURBANCE IN ATTENTION [None]
  - PANIC ATTACK [None]
  - AGITATION [None]
  - INSOMNIA [None]
  - ANGER [None]
  - REFLEXES ABNORMAL [None]
  - CONFUSIONAL STATE [None]
  - BLOOD PRESSURE INCREASED [None]
  - NERVOUSNESS [None]
  - ABNORMAL BEHAVIOUR [None]
  - MUSCULOSKELETAL STIFFNESS [None]
  - STRESS [None]
  - HAEMATEMESIS [None]
  - ANXIETY [None]
  - DIZZINESS [None]
  - HALLUCINATION, AUDITORY [None]
